FAERS Safety Report 15857636 (Version 1)
Quarter: 2019Q1

REPORT INFORMATION
  Report Type: Spontaneous
  Country: US (occurrence: US)
  Receive Date: 20190118
  Receipt Date: 20190118
  Transmission Date: 20190417
  Serious: No
  Sender: FDA-Public Use
  Company Number: None

PATIENT
  Age: 83 Year
  Weight: 52.16 kg

DRUGS (1)
  1. ESTRADIOL VAGINAL TAB W APPLICATOR 10 [Suspect]
     Active Substance: ESTRADIOL
     Indication: VULVOVAGINAL DRYNESS
     Route: 067
     Dates: start: 201810

REACTIONS (3)
  - Vulvovaginal injury [None]
  - Injury associated with device [None]
  - Device malfunction [None]

NARRATIVE: CASE EVENT DATE: 20190115
